APPROVED DRUG PRODUCT: CORTIFOAM
Active Ingredient: HYDROCORTISONE ACETATE
Strength: 10%
Dosage Form/Route: AEROSOL, METERED;RECTAL
Application: N017351 | Product #001
Applicant: VIATRIS SPECIALTY LLC
Approved: Feb 10, 1982 | RLD: Yes | RS: Yes | Type: RX